FAERS Safety Report 5518270-5 (Version None)
Quarter: 2007Q4

REPORT INFORMATION
  Report Type: 
  Country: None (occurrence: None)
  Receive Date: 20071115
  Receipt Date: 20071109
  Transmission Date: 20080405
  Serious: Yes (Hospitalization)
  Sender: FDA-Public Use
  Company Number: B0494700A

PATIENT
  Age: 79 Year
  Sex: Male

DRUGS (6)
  1. ARIXTRA [Suspect]
     Indication: THROMBOSIS PROPHYLAXIS
     Dosage: 2.5MG PER DAY
     Route: 058
     Dates: start: 20071029, end: 20071101
  2. FRANDOL S [Concomitant]
     Indication: DRUG USE FOR UNKNOWN INDICATION
     Dosage: 40MG PER DAY
     Route: 062
  3. MAGMITT [Concomitant]
     Indication: DRUG USE FOR UNKNOWN INDICATION
     Dosage: 330MG THREE TIMES PER DAY
     Route: 048
  4. LOXONIN [Concomitant]
     Indication: DRUG USE FOR UNKNOWN INDICATION
     Dosage: 180MG PER DAY
     Route: 048
  5. SELBEX [Concomitant]
     Indication: DRUG USE FOR UNKNOWN INDICATION
     Dosage: 50MG THREE TIMES PER DAY
     Route: 048
  6. UNASYN [Concomitant]
     Indication: DRUG USE FOR UNKNOWN INDICATION
     Dosage: 3G PER DAY

REACTIONS (1)
  - GASTRIC ULCER HAEMORRHAGE [None]
